FAERS Safety Report 12953924 (Version 4)
Quarter: 2018Q4

REPORT INFORMATION
  Report Type: Spontaneous
  Country: US (occurrence: US)
  Receive Date: 20161118
  Receipt Date: 20181005
  Transmission Date: 20190204
  Serious: Yes (Other)
  Sender: FDA-Public Use
  Company Number: PHEH2016US029771

PATIENT
  Sex: Male

DRUGS (3)
  1. MARIJUANA [Concomitant]
     Active Substance: CANNABIS SATIVA SUBSP. INDICA TOP
     Indication: PRODUCT USED FOR UNKNOWN INDICATION
     Dosage: DAILY USE IN THE MID EVENING
     Route: 065
  2. GILENYA [Suspect]
     Active Substance: FINGOLIMOD HYDROCHLORIDE
     Indication: PRODUCT USED FOR UNKNOWN INDICATION
     Dosage: UNK, QD
     Route: 065
  3. VITAMIN D [Concomitant]
     Active Substance: CHOLECALCIFEROL
     Indication: PRODUCT USED FOR UNKNOWN INDICATION
     Dosage: UNK
     Route: 065

REACTIONS (13)
  - Humidity intolerance [Unknown]
  - Diplopia [Unknown]
  - Memory impairment [Unknown]
  - Euphoric mood [Unknown]
  - Sensory disturbance [Unknown]
  - Tension [Unknown]
  - Multiple sclerosis relapse [Unknown]
  - Stress [Unknown]
  - Fatigue [Unknown]
  - Gait disturbance [Unknown]
  - Motor dysfunction [Unknown]
  - Balance disorder [Unknown]
  - Cognitive disorder [Unknown]
